FAERS Safety Report 7371877-5 (Version None)
Quarter: 2011Q1

REPORT INFORMATION
  Report Type: 
  Country: None (occurrence: None)
  Receive Date: 20110324
  Receipt Date: 20110310
  Transmission Date: 20110831
  Serious: Yes (Other)
  Sender: FDA-Public Use
  Company Number: US-JNJFOC-20110208596

PATIENT
  Sex: Female
  Weight: 65.77 kg

DRUGS (3)
  1. AMBIEN [Concomitant]
     Indication: INSOMNIA
     Route: 048
  2. REMICADE [Suspect]
     Indication: PSORIASIS
     Route: 042
  3. ZOCOR [Concomitant]
     Indication: BLOOD CHOLESTEROL INCREASED
     Route: 048

REACTIONS (6)
  - GLOSSODYNIA [None]
  - BACK PAIN [None]
  - ARTHRALGIA [None]
  - WEIGHT DECREASED [None]
  - AGEUSIA [None]
  - SINUSITIS [None]
